FAERS Safety Report 7473028-5 (Version None)
Quarter: 2011Q2

REPORT INFORMATION
  Report Type: 
  Country: None (occurrence: None)
  Receive Date: 20110511
  Receipt Date: 20110509
  Transmission Date: 20111010
  Serious: Yes (Other)
  Sender: FDA-Public Use
  Company Number: US-PFIZER INC-2008068823

PATIENT
  Sex: Female
  Weight: 45.351 kg

DRUGS (8)
  1. LIPITOR [Suspect]
     Dosage: 10 MG, 1X/DAY
  2. PREMARIN [Concomitant]
     Dosage: UNK
  3. HYDROCHLOROTHIAZIDE [Concomitant]
     Indication: HYPERTENSION
     Dosage: UNK
  4. LIPITOR [Suspect]
     Indication: BLOOD CHOLESTEROL INCREASED
     Dosage: 20 MG, 1X/DAY
     Route: 048
  5. FOLIC ACID [Concomitant]
     Dosage: UNK
  6. LIPITOR [Suspect]
     Dosage: 20 MG, DAILY
     Route: 048
  7. ENALAPRIL [Concomitant]
     Dosage: UNK
  8. SYNTHROID [Concomitant]
     Indication: HYPOTHYROIDISM
     Dosage: UNK

REACTIONS (3)
  - CERVIX CARCINOMA [None]
  - FEELING ABNORMAL [None]
  - MUSCLE DISORDER [None]
